FAERS Safety Report 8366104-6 (Version None)
Quarter: 2012Q2

REPORT INFORMATION
  Report Type: 
  Country: None (occurrence: None)
  Receive Date: 20120516
  Receipt Date: 20120516
  Transmission Date: 20120825
  Serious: No
  Sender: FDA-Public Use
  Company Number: None

PATIENT
  Age: 75 Year
  Sex: Female
  Weight: 72.5755 kg

DRUGS (2)
  1. HYDROXYZINE HYDROCHLORIDE [Suspect]
     Indication: SLEEP DISORDER
     Dosage: 1 AS NEEDED
     Dates: start: 20120420
  2. CYCLOBENZAPRINE HCL [Suspect]
     Dosage: TOOK 1/2 AS NEEDED

REACTIONS (6)
  - MUSCLE SPASMS [None]
  - FEELING ABNORMAL [None]
  - MUSCLE TWITCHING [None]
  - MOVEMENT DISORDER [None]
  - DRUG INEFFECTIVE [None]
  - HOT FLUSH [None]
